FAERS Safety Report 8519155 (Version 2)
Quarter: 2013Q3

REPORT INFORMATION
  Report Type: Report from Study
  Country: MX (occurrence: MX)
  Receive Date: 20120418
  Receipt Date: 20130711
  Transmission Date: 20140515
  Serious: Yes (Hospitalization, Disabling, Other)
  Sender: FDA-Public Use
  Company Number: PHHY2012MX031288

PATIENT
  Age: 53 Year
  Sex: Male

DRUGS (4)
  1. TRILEPTAL [Suspect]
     Indication: PAIN IN EXTREMITY
     Dosage: 1 DF, DAILY
     Route: 048
     Dates: start: 20120212, end: 20120327
  2. TRILEPTAL [Suspect]
     Indication: OFF LABEL USE
  3. INSULIN [Concomitant]
     Indication: DIABETES MELLITUS
     Dosage: 40 IU, DAILY
     Route: 058
  4. CAUDALINE [Concomitant]

REACTIONS (4)
  - Extremity necrosis [Recovered/Resolved]
  - Pain [Recovered/Resolved]
  - Poor peripheral circulation [Recovered/Resolved]
  - Diabetes mellitus [Unknown]
